FAERS Safety Report 8401514 (Version 2)
Quarter: 2013Q2

REPORT INFORMATION
  Report Type: Report from Study
  Country: MX (occurrence: MX)
  Receive Date: 20120210
  Receipt Date: 20130417
  Transmission Date: 20140414
  Serious: Yes (Death)
  Sender: FDA-Public Use
  Company Number: PHHY2012MX010079

PATIENT
  Age: 94 Year
  Sex: Female

DRUGS (1)
  1. STALEVO [Suspect]
     Indication: PARKINSON^S DISEASE
     Dosage: 200/150/37.5MG THREE TABLETS PER DAY
     Route: 048
     Dates: start: 20070929

REACTIONS (1)
  - Myocardial infarction [Fatal]
